FAERS Safety Report 6660445-6 (Version None)
Quarter: 2010Q1

REPORT INFORMATION
  Report Type: 
  Country: None (occurrence: None)
  Receive Date: 20100326
  Receipt Date: 20090327
  Transmission Date: 20100710
  Serious: Yes (Hospitalization)
  Sender: FDA-Public Use
  Company Number: 2009EU001339

PATIENT
  Age: 74 Year
  Sex: Male
  Weight: 85 kg

DRUGS (2)
  1. SOLIFENACIN SUCCINATE (VESICARE) [Suspect]
     Indication: HYPERTONIC BLADDER
     Dosage: 10 MG, /D, ORAL;  5 MG, /D, ORAL
     Route: 048
     Dates: start: 20081215, end: 20090120
  2. SOLIFENACIN SUCCINATE (VESICARE) [Suspect]
     Indication: HYPERTONIC BLADDER
     Dosage: 10 MG, /D, ORAL;  5 MG, /D, ORAL
     Route: 048
     Dates: start: 20090121, end: 20090123

REACTIONS (3)
  - BLADDER NECK OBSTRUCTION [None]
  - DYSURIA [None]
  - URINARY RETENTION [None]
